FAERS Safety Report 11406751 (Version 1)
Quarter: 2015Q3

REPORT INFORMATION
  Report Type: Spontaneous
  Country: CA (occurrence: CA)
  Receive Date: 20150821
  Receipt Date: 20150821
  Transmission Date: 20151125
  Serious: Yes (Other)
  Sender: FDA-Public Use
  Company Number: CA-DSJP-DSU-2015-126342

PATIENT

DRUGS (1)
  1. LODALIS [Suspect]
     Active Substance: COLESEVELAM HYDROCHLORIDE
     Indication: PRODUCT USED FOR UNKNOWN INDICATION
     Dosage: 2 DF, TID
     Route: 048

REACTIONS (4)
  - Blood triglycerides increased [Unknown]
  - High density lipoprotein decreased [Unknown]
  - Blood cholesterol increased [Unknown]
  - Off label use [Unknown]
